FAERS Safety Report 9636997 (Version 2)
Quarter: 2013Q4

REPORT INFORMATION
  Report Type: Report from Study
  Country: CN (occurrence: CN)
  Receive Date: 20131022
  Receipt Date: 20131024
  Transmission Date: 20140711
  Serious: Yes (Death, Other)
  Sender: FDA-Public Use
  Company Number: CN-ROCHE-1288653

PATIENT
  Age: 56 Year
  Sex: Female

DRUGS (6)
  1. HERCEPTIN [Suspect]
     Indication: HER-2 POSITIVE BREAST CANCER
     Route: 041
     Dates: start: 2012, end: 2012
  2. HERCEPTIN [Suspect]
     Indication: METASTASES TO LIVER
     Route: 041
     Dates: start: 20130830, end: 20130918
  3. VINPOCETINE [Concomitant]
     Indication: BREAST CANCER
     Route: 065
     Dates: start: 20130830, end: 20130918
  4. VINPOCETINE [Concomitant]
     Indication: METASTASES TO LIVER
  5. VINORELBINE [Concomitant]
     Indication: HER-2 POSITIVE BREAST CANCER
  6. VINORELBINE [Concomitant]
     Indication: METASTASES TO LIVER

REACTIONS (8)
  - Cardiac failure [Fatal]
  - Pyrexia [Fatal]
  - Respiratory failure [Fatal]
  - Infusion related reaction [Recovering/Resolving]
  - Breast cancer recurrent [Unknown]
  - Metastasis [Unknown]
  - Tachypnoea [Unknown]
  - Metastases to liver [Unknown]
